FAERS Safety Report 10979498 (Version 1)
Quarter: 2015Q2

REPORT INFORMATION
  Report Type: Spontaneous
  Country: DK (occurrence: DK)
  Receive Date: 20150402
  Receipt Date: 20150402
  Transmission Date: 20150821
  Serious: Yes (Other)
  Sender: FDA-Public Use
  Company Number: DK-FRI-1000075606

PATIENT
  Age: 41 Year
  Sex: Male
  Weight: 86 kg

DRUGS (6)
  1. MANDOLGIN RETARD [Suspect]
     Active Substance: TRAMADOL
     Indication: BACK PAIN
     Dosage: 400 MG
     Dates: start: 20070101, end: 201312
  2. NORITREN [Concomitant]
     Active Substance: NORTRIPTYLINE HYDROCHLORIDE
     Indication: DEPRESSION
     Route: 065
  3. SAROTEN [Suspect]
     Active Substance: AMITRIPTYLINE
     Indication: DEPRESSION
     Route: 048
     Dates: start: 20050101, end: 201312
  4. MANDOLGIN RETARD [Suspect]
     Active Substance: TRAMADOL
     Route: 065
     Dates: end: 201312
  5. CITALOPRAM [Suspect]
     Active Substance: CITALOPRAM HYDROBROMIDE
     Indication: DEPRESSION
     Route: 048
  6. LYRICA [Suspect]
     Active Substance: PREGABALIN
     Indication: BACK PAIN
     Dosage: STYRKE: 75 MG. DOSIS: 3 KAPSLER MORGEN, 2 KAPSLER MIDDAG OG 3 KAPSLER TIL AFTEN.
     Dates: start: 20080101, end: 201312

REACTIONS (6)
  - Arthralgia [Recovered/Resolved]
  - Drug withdrawal syndrome [Unknown]
  - Treatment noncompliance [Unknown]
  - Suicidal behaviour [Recovered/Resolved]
  - Intentional product misuse [Unknown]
  - Drug dependence [Unknown]

NARRATIVE: CASE EVENT DATE: 20130710
